FAERS Safety Report 8896222 (Version 1)
Quarter: 2012Q4

REPORT INFORMATION
  Report Type: 
  Country: DE (occurrence: DE)
  Receive Date: 20121108
  Receipt Date: 20121108
  Transmission Date: 20130627
  Serious: Yes (Other)
  Sender: FDA-Public Use
  Company Number: DE-PFIZER INC-2012274177

PATIENT
  Age: 71 Year
  Sex: Female

DRUGS (3)
  1. LATANOPROST [Suspect]
     Indication: INTRAOCULAR PRESSURE TEST
     Dosage: UNK
  2. CLONID-OPHTAL [Concomitant]
  3. AZOPT [Concomitant]

REACTIONS (3)
  - Depression suicidal [Not Recovered/Not Resolved]
  - Amyotrophic lateral sclerosis [Not Recovered/Not Resolved]
  - Enophthalmos [Not Recovered/Not Resolved]
